FAERS Safety Report 4512845-8 (Version None)
Quarter: 2004Q4

REPORT INFORMATION
  Report Type: 
  Country: None (occurrence: None)
  Receive Date: 20041119
  Receipt Date: 20041119
  Transmission Date: 20050328
  Serious: Yes (Hospitalization)
  Sender: FDA-Public Use
  Company Number: None

PATIENT
  Sex: Male
  Weight: 102 kg

DRUGS (13)
  1. ZOSYN [Suspect]
     Indication: ARTHRITIS BACTERIAL
     Dosage: 3.375GM    EVERY 4 HOURS   INTRAVENOUS
     Route: 042
     Dates: start: 20041024, end: 20041110
  2. ZOSYN [Suspect]
     Indication: STREPTOCOCCAL INFECTION
     Dosage: 3.375GM    EVERY 4 HOURS   INTRAVENOUS
     Route: 042
     Dates: start: 20041024, end: 20041110
  3. METFORMIN HCL [Concomitant]
  4. PROTONIX [Concomitant]
  5. TYLENOL (CAPLET) [Concomitant]
  6. ALPRAZOLAM [Concomitant]
  7. NASONEX [Concomitant]
  8. ECOTRIN [Concomitant]
  9. LISINOPRIL [Concomitant]
  10. NIFEDIPINE [Concomitant]
  11. AMARYL [Concomitant]
  12. DARVOCET-N 100 [Concomitant]
  13. FLEET RECTAROID ENEMA [Concomitant]

REACTIONS (2)
  - BODY TEMPERATURE INCREASED [None]
  - RASH [None]
